FAERS Safety Report 25074222 (Version 1)
Quarter: 2025Q1

REPORT INFORMATION
  Report Type: Spontaneous
  Country: US (occurrence: None)
  Receive Date: 20250313
  Receipt Date: 20250313
  Transmission Date: 20250408
  Serious: Yes (Other)
  Sender: FDA-CTU
  Company Number: None

PATIENT
  Age: 56 Year
  Sex: Female

DRUGS (20)
  1. DROXIDOPA [Suspect]
     Active Substance: DROXIDOPA
     Indication: Autonomic neuropathy
     Dosage: FREQUENCY : 3 TIMES A DAY;?
     Dates: start: 20210521
  2. ADVAIR DISKUS [Concomitant]
     Active Substance: FLUTICASONE PROPIONATE\SALMETEROL XINAFOATE
  3. AIMOVIG [Concomitant]
     Active Substance: ERENUMAB-AOOE
  4. ALBUTEROL AER HFA [Concomitant]
  5. ATORVASTATIN [Concomitant]
     Active Substance: ATORVASTATIN
  6. CLOBETASOL PROPIONATE [Concomitant]
     Active Substance: CLOBETASOL PROPIONATE
  7. CYMBALTA CAP 60MG [Concomitant]
  8. DIVALPROEX TAB 500MG ER [Concomitant]
  9. DOXEPI N HCL CAP 50MG [Concomitant]
  10. FAMOTIDINE [Concomitant]
     Active Substance: FAMOTIDINE
  11. FLUTICASONE [Concomitant]
     Active Substance: FLUTICASONE
  12. XARELTO [Concomitant]
     Active Substance: RIVAROXABAN
  13. VITAMIN D TAB 2000UNIT [Concomitant]
  14. LEVETIRACETA TAB lOOOMG [Concomitant]
  15. OMEPRAZOLE [Concomitant]
     Active Substance: OMEPRAZOLE
  16. MIDODRINE TAB 10MG [Concomitant]
  17. POT CHLORIDE POW 20MEQ [Concomitant]
  18. LINZESS CAP 290MCG [Concomitant]
  19. XIIDRA DRO 5% [Concomitant]
  20. MODTELUKAST TAB 10MG [Concomitant]

REACTIONS (2)
  - Medical procedure [None]
  - Therapy interrupted [None]

NARRATIVE: CASE EVENT DATE: 20250306
